FAERS Safety Report 21800561 (Version 1)
Quarter: 2022Q4

REPORT INFORMATION
  Report Type: Report from Study
  Country: MX (occurrence: MX)
  Receive Date: 20221230
  Receipt Date: 20221230
  Transmission Date: 20230113
  Serious: Yes (Death, Hospitalization)
  Sender: FDA-Public Use
  Company Number: MX-BAYER-2022A170276

PATIENT
  Age: 71 Year
  Sex: Male

DRUGS (1)
  1. NEXAVAR [Suspect]
     Active Substance: SORAFENIB
     Indication: Hepatocellular carcinoma
     Dosage: 200 MG, BID (200 MG MORNING AND 200 MG EVENING)
     Route: 048
     Dates: start: 20221206, end: 20221212

REACTIONS (2)
  - Dehydration [Fatal]
  - Off label use [None]

NARRATIVE: CASE EVENT DATE: 20221212
